FAERS Safety Report 5264034-X (Version None)
Quarter: 2007Q1

REPORT INFORMATION
  Report Type: 
  Country: None (occurrence: None)
  Receive Date: 20061213
  Receipt Date: 20060518
  Transmission Date: 20070707
  Serious: Yes (Other)
  Sender: FDA-Public Use
  Company Number: 2006UW06579

PATIENT
  Age: 56 Year
  Sex: Female

DRUGS (2)
  1. IRESSA [Suspect]
     Indication: BRONCHIOLOALVEOLAR CARCINOMA
     Dosage: 250 MG DAILY PO
     Route: 048
     Dates: start: 20040301
  2. IRESSA [Suspect]
     Indication: BRONCHIOLOALVEOLAR CARCINOMA
     Dosage: 250 MG QOD PO
     Route: 048

REACTIONS (3)
  - DIARRHOEA [None]
  - FOLLICULITIS [None]
  - RASH GENERALISED [None]
